FAERS Safety Report 8772020 (Version 2)
Quarter: 2012Q4

REPORT INFORMATION
  Report Type: 
  Country: US (occurrence: US)
  Receive Date: 20120906
  Receipt Date: 20121016
  Transmission Date: 20130627
  Serious: No
  Sender: FDA-Public Use
  Company Number: US-009507513-1209USA001400

PATIENT
  Sex: Female
  Weight: 87.75 kg

DRUGS (5)
  1. ASMANEX TWISTHALER [Suspect]
     Indication: ASTHMA
     Dosage: 1 DF, qd
     Dates: start: 201004
  2. PROVENTIL HFA [Concomitant]
  3. FERROUS SULFATE [Concomitant]
  4. PANTOPRAZOLE [Concomitant]
     Dosage: 40 g, qd
  5. ROXIN [Concomitant]
     Dosage: UNK, qd

REACTIONS (3)
  - Drug dose omission [Unknown]
  - Product quality issue [Unknown]
  - No adverse event [Unknown]
